FAERS Safety Report 12864351 (Version 2)
Quarter: 2016Q4

REPORT INFORMATION
  Report Type: Spontaneous
  Country: US (occurrence: US)
  Receive Date: 20161020
  Receipt Date: 20161212
  Transmission Date: 20170207
  Serious: No
  Sender: FDA-Public Use
  Company Number: US-TEVA-692384USA

PATIENT
  Sex: Female
  Weight: 55.39 kg

DRUGS (2)
  1. RISEDRONATE SODIUM DELAYED-RELEASE [Suspect]
     Active Substance: RISEDRONATE SODIUM
     Indication: OSTEOPOROSIS
     Route: 065
     Dates: start: 20160808, end: 201610
  2. AMLODIPINE W/BENAZEPRIL [Suspect]
     Active Substance: AMLODIPINE BESYLATE\BENAZEPRIL HYDROCHLORIDE
     Indication: HYPERTENSION
     Dosage: 5MG AMLODIPINE + 20MG BENAZEPRIL
     Route: 065
     Dates: start: 201303, end: 20161031

REACTIONS (3)
  - Skin discolouration [Recovered/Resolved]
  - Contusion [Recovered/Resolved]
  - Thermal burn [Recovered/Resolved]
